FAERS Safety Report 4889099-6 (Version None)
Quarter: 2005Q4

REPORT INFORMATION
  Report Type: 
  Country: None (occurrence: None)
  Receive Date: 20051216
  Receipt Date: 20051014
  Transmission Date: 20060501
  Serious: No
  Sender: FDA-Public Use
  Company Number: USA0509109175

PATIENT
  Age: 46 Year
  Sex: Male

DRUGS (6)
  1. CIALIS [Suspect]
     Dosage: 10 MG
     Dates: start: 20041001, end: 20050101
  2. LEVITRA [Concomitant]
  3. DIOVAN HCT [Concomitant]
  4. MULTI-VITAMIN [Concomitant]
  5. ASCORBIC ACID [Concomitant]
  6. GLUCOSAMINE SULFATE [Concomitant]

REACTIONS (2)
  - CHEST DISCOMFORT [None]
  - DYSPNOEA EXERTIONAL [None]
